FAERS Safety Report 5330956-4 (Version None)
Quarter: 2007Q2

REPORT INFORMATION
  Report Type: 
  Country: None (occurrence: None)
  Receive Date: 20070517
  Receipt Date: 20070511
  Transmission Date: 20071010
  Serious: Yes (Life-Threatening, Hospitalization, Disabling)
  Sender: FDA-Public Use
  Company Number: OSCN-PR-0705S-0208

PATIENT
  Age: 38 Year
  Sex: Male
  Weight: 70 kg

DRUGS (1)
  1. OMNISCAN [Suspect]
     Indication: PULMONARY HYPERTENSION
     Dosage: 30 ML, SINGLE DOSE, I.V.
     Route: 042
     Dates: start: 20061128, end: 20061128

REACTIONS (2)
  - BONE PAIN [None]
  - NEPHROGENIC FIBROSING DERMOPATHY [None]
